FAERS Safety Report 5161757-8 (Version None)
Quarter: 2006Q4

REPORT INFORMATION
  Report Type: 
  Country: None (occurrence: None)
  Receive Date: 20061130
  Receipt Date: 20061128
  Transmission Date: 20070319
  Serious: Yes (Other)
  Sender: FDA-Public Use
  Company Number: HU-GLAXOSMITHKLINE-B0448593A

PATIENT
  Age: 53 Year
  Sex: Female

DRUGS (1)
  1. AVANDAMET [Suspect]
     Route: 048
     Dates: start: 20061002, end: 20061005

REACTIONS (4)
  - EYE OEDEMA [None]
  - FACE OEDEMA [None]
  - HYPOGLYCAEMIA [None]
  - OEDEMA PERIPHERAL [None]
